APPROVED DRUG PRODUCT: CARBAMAZEPINE
Active Ingredient: CARBAMAZEPINE
Strength: 200MG
Dosage Form/Route: TABLET;ORAL
Application: A213284 | Product #001 | TE Code: AB
Applicant: UNICHEM LABORATORIES LTD
Approved: Aug 22, 2022 | RLD: No | RS: No | Type: RX